FAERS Safety Report 4733751-X (Version None)
Quarter: 2005Q3

REPORT INFORMATION
  Report Type: 
  Country: None (occurrence: None)
  Receive Date: 20050729
  Receipt Date: 20050712
  Transmission Date: 20060218
  Serious: Yes (Other)
  Sender: FDA-Public Use
  Company Number: 2005-BP-11852RO

PATIENT
  Age: 56 Year
  Sex: Male

DRUGS (5)
  1. CITALOPRAM HYDROBROMIDE [Suspect]
     Indication: DEPRESSION
     Dosage: PO
     Route: 048
  2. LAMOTRIGINE [Suspect]
     Indication: DEPRESSION
     Dosage: 100 MG (NR), PO
     Route: 048
  3. ATORVASTATIN CALCIUM [Concomitant]
  4. RAMIPRIL (RAIPRIL) [Concomitant]
  5. ASPIRIN [Concomitant]

REACTIONS (9)
  - ABNORMAL BEHAVIOUR [None]
  - DIZZINESS [None]
  - DRUG EFFECT DECREASED [None]
  - ECONOMIC PROBLEM [None]
  - GAMBLING [None]
  - HYPOMANIA [None]
  - NAUSEA [None]
  - PARTNER STRESS [None]
  - SEXUAL ACTIVITY INCREASED [None]
